FAERS Safety Report 8785460 (Version 1)
Quarter: 2012Q4

REPORT INFORMATION
  Report Type: 
  Country: US (occurrence: US)
  Receive Date: 20120914
  Receipt Date: 20120914
  Transmission Date: 20130627
  Serious: Yes (Other)
  Sender: FDA-Public Use
  Company Number: US-ROXANE LABORATORIES, INC.-2012-RO-01833RO

PATIENT
  Age: 35 Year
  Sex: Female

DRUGS (3)
  1. METHOTREXATE [Suspect]
     Indication: PEMPHIGUS
  2. PREDNISONE [Suspect]
     Indication: PEMPHIGUS
  3. PREDNISONE [Suspect]
     Indication: ADRENAL INSUFFICIENCY
     Dosage: 5 mg
     Route: 048

REACTIONS (3)
  - Herpes virus infection [Unknown]
  - Histology abnormal [Unknown]
  - Adrenal insufficiency [Unknown]
